FAERS Safety Report 4504102-0 (Version None)
Quarter: 2004Q4

REPORT INFORMATION
  Report Type: 
  Country: None (occurrence: None)
  Receive Date: 20041115
  Receipt Date: 20041101
  Transmission Date: 20050328
  Serious: Yes (Hospitalization)
  Sender: FDA-Public Use
  Company Number: 210149

PATIENT
  Age: 38 Year
  Sex: Female
  Weight: 75 kg

DRUGS (6)
  1. RAPTIVA [Suspect]
     Indication: PSORIASIS
     Dosage: 80 MG, 1/WEEK, SUBCUTANEOUS
     Route: 058
     Dates: start: 20040403, end: 20041018
  2. COPAXONE [Concomitant]
  3. NEORAL [Concomitant]
  4. CLOBETASOL (CLOBETASOL PROPIONATE) [Concomitant]
  5. CUTIVATE (FLUTICASONE PROPIONATE) [Concomitant]
  6. DIPROLENE (BETAMETHASONE DIPROPIONATE) [Concomitant]

REACTIONS (9)
  - ARTHRITIS REACTIVE [None]
  - AUTOIMMUNE DISORDER [None]
  - IMMUNOSUPPRESSION [None]
  - JOINT EFFUSION [None]
  - PHARYNGOLARYNGEAL PAIN [None]
  - POLYARTHRITIS [None]
  - PSORIATIC ARTHROPATHY [None]
  - RED BLOOD CELL SEDIMENTATION RATE INCREASED [None]
  - RHEUMATIC FEVER [None]
